FAERS Safety Report 19099093 (Version 2)
Quarter: 2021Q2

REPORT INFORMATION
  Report Type: Spontaneous
  Country: BR (occurrence: BR)
  Receive Date: 20210406
  Receipt Date: 20210423
  Transmission Date: 20210717
  Serious: Yes (Hospitalization)
  Sender: FDA-Public Use
  Company Number: BR-B.I. PHARMACEUTICALS,INC./RIDGEFIELD-2021-BI-094137

PATIENT
  Age: 86 Year
  Sex: Male
  Weight: 71 kg

DRUGS (11)
  1. PROCIMAX [Concomitant]
     Active Substance: CITALOPRAM HYDROBROMIDE
     Indication: PRODUCT USED FOR UNKNOWN INDICATION
     Dosage: CONTINUOUS USE
  2. PERSANTIN [Suspect]
     Active Substance: DIPYRIDAMOLE
     Indication: SCAN MYOCARDIAL PERFUSION
     Dosage: ADMINISTERED ON THE EFFORT STEP?7ML
     Route: 042
     Dates: start: 20210303, end: 20210303
  3. PROCARDIA [Concomitant]
     Active Substance: NIFEDIPINE
     Indication: SCAN MYOCARDIAL PERFUSION
     Dosage: ADMINISTERED ON THE EFFORT STEP?15 MCI
     Route: 042
     Dates: start: 20210303, end: 20210303
  4. CONCOR [Concomitant]
     Active Substance: BISOPROLOL FUMARATE
     Indication: PRODUCT USED FOR UNKNOWN INDICATION
     Dosage: CONTINUOUS USE
  5. SINVASTATINA [Concomitant]
     Active Substance: SIMVASTATIN
     Indication: PRODUCT USED FOR UNKNOWN INDICATION
     Dosage: CONTINUOUS USE
  6. RIVOTRIL [Concomitant]
     Active Substance: CLONAZEPAM
     Indication: PRODUCT USED FOR UNKNOWN INDICATION
     Dosage: CONTINUOUS USE
  7. AMINOFILINA [Concomitant]
     Active Substance: AMINOPHYLLINE
     Indication: SCAN MYOCARDIAL PERFUSION
     Dosage: ADMINISTERED ON THE EFFORT STEP
     Route: 042
     Dates: start: 20210303, end: 20210303
  8. ANCORON [Concomitant]
     Active Substance: AMIODARONE HYDROCHLORIDE
     Indication: PRODUCT USED FOR UNKNOWN INDICATION
     Dosage: CONTINUOUS USE
  9. PURAN [Concomitant]
     Active Substance: LEVOTHYROXINE SODIUM
     Indication: PRODUCT USED FOR UNKNOWN INDICATION
     Dosage: CONTINUOUS USE
  10. INDAPAMIDA [Concomitant]
     Active Substance: INDAPAMIDE
     Indication: PRODUCT USED FOR UNKNOWN INDICATION
     Dosage: CONTINUOUS USE
  11. CLOPIDOGREL [Concomitant]
     Active Substance: CLOPIDOGREL BISULFATE
     Indication: PRODUCT USED FOR UNKNOWN INDICATION
     Dosage: CONTINUOUS USE

REACTIONS (4)
  - Vomiting [Unknown]
  - Cyanosis [Unknown]
  - Malaise [Unknown]
  - Oxygen saturation decreased [Unknown]

NARRATIVE: CASE EVENT DATE: 20210303
